FAERS Safety Report 5566301-9 (Version None)
Quarter: 2007Q4

REPORT INFORMATION
  Report Type: 
  Country: None (occurrence: None)
  Receive Date: 20071214
  Receipt Date: 20071203
  Transmission Date: 20080405
  Serious: Yes (Other)
  Sender: FDA-Public Use
  Company Number: 2007337031

PATIENT
  Age: 73 Year
  Sex: Female

DRUGS (2)
  1. PHENYLEPHRINE (PHENYLEPHRINE) [Suspect]
  2. MYDRIACYL [Concomitant]

REACTIONS (3)
  - GASTROINTESTINAL DISORDER [None]
  - HYPERAEMIA [None]
  - NONSPECIFIC REACTION [None]
